FAERS Safety Report 22258636 (Version 1)
Quarter: 2023Q2

REPORT INFORMATION
  Report Type: Spontaneous
  Country: US (occurrence: US)
  Receive Date: 20230427
  Receipt Date: 20230427
  Transmission Date: 20230722
  Serious: Yes (Other)
  Sender: FDA-Public Use
  Company Number: US-JNJFOC-20230443559

PATIENT
  Age: 80 Year
  Sex: Female

DRUGS (1)
  1. TYLENOL EXTRA STRENGTH [Suspect]
     Active Substance: ACETAMINOPHEN
     Indication: Pain
     Dosage: 1 TABLET JUST TODAY
     Route: 048
     Dates: start: 20230418

REACTIONS (4)
  - Foreign body in throat [Unknown]
  - Product complaint [Unknown]
  - Expired product administered [Unknown]
  - Discomfort [Unknown]

NARRATIVE: CASE EVENT DATE: 20230418
